FAERS Safety Report 9254007 (Version 1)
Quarter: 2013Q1

REPORT INFORMATION
  Report Type: Spontaneous
  Country: US (occurrence: None)
  Receive Date: 20121211
  Receipt Date: 20121211
  Transmission Date: 20140127
  Serious: Yes (Other)
  Sender: FDA-Public Use
  Company Number: 1209USA003938

PATIENT
  Age: 27 Year
  Sex: Male

DRUGS (3)
  1. NOVIR [Suspect]
     Route: 048
  2. ISENTRESS [Suspect]
     Route: 048
  3. PREZISTA [Suspect]
     Route: 048

REACTIONS (1)
  - Blood creatine phosphokinase increased [None]
